FAERS Safety Report 9702328 (Version 2)
Quarter: 2013Q4

REPORT INFORMATION
  Report Type: Spontaneous
  Country: DE (occurrence: DE)
  Receive Date: 20131121
  Receipt Date: 20131121
  Transmission Date: 20140711
  Serious: Yes (Other)
  Sender: FDA-Public Use
  Company Number: GXKR2013DE003493

PATIENT
  Age: 65 Year
  Sex: Male
  Weight: 75 kg

DRUGS (9)
  1. SIMVASTATIN 1A PHARMA [Suspect]
     Dosage: 10 MG, QD (AS MORNING DOSE)
     Route: 048
     Dates: start: 20000101
  2. SIMVASTATIN 1A PHARMA [Suspect]
     Dosage: 10 MG, QD (AS EVENING DOSE)
     Dates: start: 201311
  3. METFORMIN [Concomitant]
     Dosage: 1 DF, BID (1-0-1)
     Route: 048
     Dates: start: 20000101
  4. METFORMIN [Concomitant]
     Dosage: 500 MG, BID (1-0-1)
     Dates: start: 20060621
  5. METFORMIN [Concomitant]
     Dosage: 500 MG, QD (1-0-0)
     Dates: start: 20130501
  6. METFORMIN [Concomitant]
     Dosage: 500 MG, BID
     Dates: start: 201309
  7. BLOPRESS [Concomitant]
     Dosage: 4 MG, QD
  8. GALVUS [Concomitant]
     Dosage: 50 MG, BID (1-01-1)
     Dates: start: 20100101, end: 20130501
  9. GALVUS [Concomitant]
     Dosage: 50 MG, BID
     Dates: start: 201309

REACTIONS (3)
  - Hypoglycaemic unconsciousness [Recovered/Resolved]
  - Glycosylated haemoglobin increased [Recovering/Resolving]
  - Blood glucose fluctuation [Unknown]
